FAERS Safety Report 7764721-5 (Version None)
Quarter: 2011Q3

REPORT INFORMATION
  Report Type: 
  Country: None (occurrence: None)
  Receive Date: 20110921
  Receipt Date: 20110909
  Transmission Date: 20111222
  Serious: Yes (Hospitalization, Other)
  Sender: FDA-Public Use
  Company Number: FR-AMGEN-FRASP2011027916

PATIENT
  Age: 45 Year
  Sex: Male
  Weight: 50 kg

DRUGS (3)
  1. ENBREL [Suspect]
     Dosage: 50 MG, WEEKLY
     Dates: start: 20110323
  2. BUTAZOLIDIN [Suspect]
     Indication: ANKYLOSING SPONDYLITIS
     Dosage: 2 DF, 3X/DAY
     Route: 048
     Dates: start: 20090311, end: 20110201
  3. ENBREL [Suspect]
     Indication: ANKYLOSING SPONDYLITIS
     Dosage: 50 MG, WEEKLY
     Dates: start: 20090917, end: 20110201

REACTIONS (12)
  - HYPOKALAEMIA [None]
  - HAEMORRHAGIC ANAEMIA [None]
  - FALL [None]
  - IMPAIRED HEALING [None]
  - LOSS OF CONSCIOUSNESS [None]
  - MICROCYTIC ANAEMIA [None]
  - ELECTROCARDIOGRAM REPOLARISATION ABNORMALITY [None]
  - CONVULSION [None]
  - PAROXYSMAL ARRHYTHMIA [None]
  - ANKYLOSING SPONDYLITIS [None]
  - DUODENAL ULCER HAEMORRHAGE [None]
  - OBSTRUCTION GASTRIC [None]
